FAERS Safety Report 17504124 (Version 1)
Quarter: 2020Q1

REPORT INFORMATION
  Report Type: Spontaneous
  Country: DE (occurrence: DE)
  Receive Date: 20200305
  Receipt Date: 20200305
  Transmission Date: 20200409
  Serious: Yes (Hospitalization)
  Sender: FDA-Public Use
  Company Number: NVSC2020DE060212

PATIENT
  Age: 44 Year
  Sex: Female
  Weight: 71 kg

DRUGS (13)
  1. CALCIUM [Concomitant]
     Active Substance: CALCIUM
     Indication: PRODUCT USED FOR UNKNOWN INDICATION
     Dosage: 1 OT, QD
     Route: 065
  2. BACLOFEN. [Concomitant]
     Active Substance: BACLOFEN
     Indication: MULTIPLE SCLEROSIS
     Dosage: 10 MG, QD (0.5-0.5-1 TABLET DAILY)
     Route: 048
     Dates: start: 20140512
  3. NOVALGIN [Concomitant]
     Indication: PAIN IN EXTREMITY
     Dosage: UNK
     Route: 065
     Dates: start: 20160621
  4. MAXIM [Concomitant]
     Indication: PRODUCT USED FOR UNKNOWN INDICATION
     Dosage: 1 OT, QD
     Route: 065
  5. LEVOFLOXACIN. [Suspect]
     Active Substance: LEVOFLOXACIN
     Indication: PLEURISY
     Dosage: UNK
     Route: 065
     Dates: start: 20160111, end: 20160116
  6. TYSABRI [Suspect]
     Active Substance: NATALIZUMAB
     Indication: MULTIPLE SCLEROSIS
     Dosage: 300 MG, Q4W
     Route: 042
     Dates: start: 20070705
  7. XARELTO [Concomitant]
     Active Substance: RIVAROXABAN
     Indication: PRODUCT USED FOR UNKNOWN INDICATION
     Dosage: 2 OT, QD (UNIT DOSE: 15)
     Route: 065
     Dates: end: 20160205
  8. RAMIPRIL. [Concomitant]
     Active Substance: RAMIPRIL
     Indication: HYPERTENSION
     Dosage: 1 OT, QD (UNIT DOSE: 8)
     Route: 048
     Dates: start: 20140210
  9. SATIVEX [Concomitant]
     Active Substance: NABIXIMOLS
     Indication: MULTIPLE SCLEROSIS
     Dosage: 1 OT, QD (0-0-2)
     Route: 048
     Dates: start: 20140512
  10. XARELTO [Concomitant]
     Active Substance: RIVAROXABAN
     Dosage: 1 OT, QD (UNIT DOSE: 20)
     Route: 065
  11. BACLOFEN. [Concomitant]
     Active Substance: BACLOFEN
     Dosage: 25 OT, QD
     Route: 065
  12. NEXIUM [Concomitant]
     Active Substance: ESOMEPRAZOLE MAGNESIUM
     Indication: PRODUCT USED FOR UNKNOWN INDICATION
     Dosage: 1 OT, QD (UNIT DOSE: 40)
     Route: 065
  13. AMLODIPINE [Concomitant]
     Active Substance: AMLODIPINE BESYLATE
     Indication: PRODUCT USED FOR UNKNOWN INDICATION
     Dosage: 1 OT, QD (UNIT DOSE: 10)
     Route: 065

REACTIONS (12)
  - Pleurisy [Recovered/Resolved]
  - Hypocalcaemia [Unknown]
  - Pulmonary embolism [Recovered/Resolved]
  - Pulmonary hypertension [Recovered/Resolved]
  - Supraventricular extrasystoles [Recovered/Resolved]
  - Cor pulmonale acute [Recovered/Resolved]
  - Back pain [Unknown]
  - Respiratory failure [Recovered/Resolved]
  - Drug hypersensitivity [Recovered/Resolved]
  - General physical health deterioration [Unknown]
  - Hypokalaemia [Unknown]
  - Dyspnoea [Unknown]

NARRATIVE: CASE EVENT DATE: 20160104
